FAERS Safety Report 9019629 (Version 2)
Quarter: 2014Q1

REPORT INFORMATION
  Report Type: Report from Study
  Country: IT (occurrence: IT)
  Receive Date: 20130118
  Receipt Date: 20140103
  Transmission Date: 20141002
  Serious: Yes (Death)
  Sender: FDA-Public Use
  Company Number: IT-ROCHE-1177962

PATIENT
  Age: 59 Year
  Sex: Male

DRUGS (3)
  1. BEVACIZUMAB [Suspect]
     Indication: COLORECTAL CANCER METASTATIC
     Dosage: 6 CYCLES
     Route: 065
  2. BEVACIZUMAB [Suspect]
     Indication: METASTASES TO LIVER
  3. IRINOTECAN [Suspect]
     Indication: METASTASES TO LARGE INTESTINE
     Dosage: 6 CYCLES
     Route: 065

REACTIONS (3)
  - Sepsis [Fatal]
  - Necrosis ischaemic [Fatal]
  - Hepatic function abnormal [Fatal]
